FAERS Safety Report 14014316 (Version 1)
Quarter: 2017Q3

REPORT INFORMATION
  Report Type: Spontaneous
  Country: US (occurrence: US)
  Receive Date: 20170926
  Receipt Date: 20170926
  Transmission Date: 20171128
  Serious: Yes (Other)
  Sender: FDA-Public Use
  Company Number: None

PATIENT
  Age: 19 Year
  Sex: Female

DRUGS (1)
  1. DOXYCYCLINE. [Suspect]
     Active Substance: DOXYCYCLINE
     Indication: PELVIC INFLAMMATORY DISEASE
     Route: 048
     Dates: start: 20170820, end: 20170903

REACTIONS (2)
  - Headache [None]
  - Papilloedema [None]

NARRATIVE: CASE EVENT DATE: 20170821
